FAERS Safety Report 23070581 (Version 1)
Quarter: 2023Q4

REPORT INFORMATION
  Report Type: Spontaneous
  Country: US (occurrence: US)
  Receive Date: 20231016
  Receipt Date: 20231016
  Transmission Date: 20240109
  Serious: Yes (Hospitalization)
  Sender: FDA-Public Use
  Company Number: US-AMNEAL PHARMACEUTICALS-2023-AMRX-03584

PATIENT
  Age: 49 Year
  Sex: Female

DRUGS (10)
  1. BUPROPION [Suspect]
     Active Substance: BUPROPION
     Indication: Product used for unknown indication
     Dosage: UNK
     Route: 048
  2. LORAZEPAM [Concomitant]
     Active Substance: LORAZEPAM
     Indication: Product used for unknown indication
     Dosage: UNK
     Route: 065
  3. LEVETIRACETAM [Concomitant]
     Active Substance: LEVETIRACETAM
     Indication: Product used for unknown indication
     Dosage: UNK
     Route: 065
  4. PROPOFOL [Concomitant]
     Active Substance: PROPOFOL
     Indication: Product used for unknown indication
     Dosage: UNK
     Route: 065
  5. MIDAZOLAM [Concomitant]
     Active Substance: MIDAZOLAM
     Indication: Product used for unknown indication
     Dosage: UNK
     Route: 065
  6. CALCIUM GLUCONATE [Concomitant]
     Active Substance: CALCIUM GLUCONATE
     Indication: Ventricular tachycardia
     Dosage: UNK
     Route: 042
  7. MAGNESIUM [Concomitant]
     Active Substance: MAGNESIUM
     Indication: Ventricular tachycardia
     Dosage: UNK
     Route: 042
  8. LIDOCAINE [Concomitant]
     Active Substance: LIDOCAINE
     Indication: Ventricular tachycardia
     Dosage: UNK
     Route: 042
  9. AMIODARONE [Concomitant]
     Active Substance: AMIODARONE
     Indication: Ventricular tachycardia
     Dosage: UNK
     Route: 042
  10. BICARBONATE NA [Concomitant]
     Indication: Product used for unknown indication
     Dosage: 200 ML/HR
     Route: 065

REACTIONS (5)
  - Cardiomyopathy [Unknown]
  - Cardiogenic shock [Unknown]
  - Epilepsy [Unknown]
  - Mental status changes [Unknown]
  - Labelled drug-food interaction issue [Unknown]
